FAERS Safety Report 17489861 (Version 1)
Quarter: 2020Q1

REPORT INFORMATION
  Report Type: Spontaneous
  Country: US (occurrence: US)
  Receive Date: 20200303
  Receipt Date: 20200303
  Transmission Date: 20200409
  Serious: No
  Sender: FDA-Public Use
  Company Number: US-AKORN PHARMACEUTICALS-2019AKN02536

PATIENT
  Age: 24 Year
  Sex: Female
  Weight: 78 kg

DRUGS (3)
  1. MYORISAN [Suspect]
     Active Substance: ISOTRETINOIN
     Dosage: 40 MG, 1X/DAY
     Route: 048
     Dates: start: 20191029, end: 20191204
  2. ORTHO TRI CYCLEN LO [Concomitant]
     Active Substance: ETHINYL ESTRADIOL\NORGESTIMATE
  3. MYORISAN [Suspect]
     Active Substance: ISOTRETINOIN
     Indication: ACNE
     Dosage: 80 MG, 1X/DAY
     Route: 048
     Dates: start: 20190709, end: 20191028

REACTIONS (6)
  - Vision blurred [Recovered/Resolved]
  - Photophobia [Recovered/Resolved]
  - Dry eye [Recovered/Resolved]
  - Off label use [Recovered/Resolved]
  - Xerosis [Recovering/Resolving]
  - Glare [Recovered/Resolved]

NARRATIVE: CASE EVENT DATE: 2019
